FAERS Safety Report 5708274-1 (Version None)
Quarter: 2008Q2

REPORT INFORMATION
  Report Type: 
  Country: None (occurrence: None)
  Receive Date: 20080417
  Receipt Date: 20080414
  Transmission Date: 20081010
  Serious: Yes (Other)
  Sender: FDA-Public Use
  Company Number: US-MERCK-0804USA02893

PATIENT
  Age: 86 Year
  Sex: Female

DRUGS (2)
  1. SINGULAIR [Suspect]
     Indication: ASTHMA
     Route: 048
  2. ANTINEOPLASTIC (UNSPECIFIED) [Suspect]
     Route: 065

REACTIONS (3)
  - ABASIA [None]
  - ANGER [None]
  - SUICIDAL IDEATION [None]
